FAERS Safety Report 14765847 (Version 3)
Quarter: 2018Q2

REPORT INFORMATION
  Report Type: Report from Study
  Country: US (occurrence: US)
  Receive Date: 20180416
  Receipt Date: 20180507
  Transmission Date: 20180711
  Serious: Yes (Hospitalization)
  Sender: FDA-Public Use
  Company Number: US-ACTELION-A-NJ2017-161816

PATIENT
  Age: 62 Year
  Sex: Female
  Weight: 49.89 kg

DRUGS (3)
  1. VELETRI [Suspect]
     Active Substance: EPOPROSTENOL
     Indication: PULMONARY ARTERIAL HYPERTENSION
     Dosage: 36 NG/KG, PER MIN
     Route: 042
  2. TRACLEER [Suspect]
     Active Substance: BOSENTAN
     Indication: PULMONARY ARTERIAL HYPERTENSION
     Dosage: 125 MG, BID
     Route: 048
  3. XARELTO [Concomitant]
     Active Substance: RIVAROXABAN

REACTIONS (7)
  - Weight decreased [Unknown]
  - Malaise [Unknown]
  - Condition aggravated [Unknown]
  - Fluid retention [Unknown]
  - Pain in jaw [Unknown]
  - Pulmonary arterial hypertension [Unknown]
  - Dyspnoea [Unknown]
